FAERS Safety Report 8838818 (Version 2)
Quarter: 2012Q4

REPORT INFORMATION
  Report Type: Report from Study
  Country: US (occurrence: US)
  Receive Date: 20121013
  Receipt Date: 20121115
  Transmission Date: 20130627
  Serious: Yes (Other)
  Sender: FDA-Public Use
  Company Number: US-US-EMD SERONO, INC.-7166323

PATIENT
  Sex: Male

DRUGS (4)
  1. REBIF [Suspect]
     Indication: MULTIPLE SCLEROSIS
     Route: 058
     Dates: start: 2004
  2. STEROIDS [Suspect]
     Indication: PRODUCT USED FOR UNKNOWN INDICATION
     Route: 042
     Dates: start: 1998
  3. STEROIDS [Suspect]
     Route: 048
  4. CELEBREX [Concomitant]
     Indication: INTERVERTEBRAL DISC DEGENERATION

REACTIONS (4)
  - Osteonecrosis [Recovering/Resolving]
  - Spinal fusion surgery [Recovering/Resolving]
  - Fall [Recovering/Resolving]
  - Limb discomfort [Not Recovered/Not Resolved]
